FAERS Safety Report 10591036 (Version 1)
Quarter: 2014Q4

REPORT INFORMATION
  Report Type: Spontaneous
  Country: GB (occurrence: GB)
  Receive Date: 20141118
  Receipt Date: 20141118
  Transmission Date: 20150529
  Serious: Yes (Life-Threatening, Hospitalization, Other)
  Sender: FDA-Public Use
  Company Number: GB-PFIZER INC-2014315042

PATIENT
  Age: 70 Year
  Sex: Female

DRUGS (12)
  1. PARACETAMOL [Concomitant]
     Active Substance: ACETAMINOPHEN
     Dosage: 1 G, 4X/DAY, AS REQUIRED
  2. BISOPROLOL [Concomitant]
     Active Substance: BISOPROLOL
     Dosage: 5 MG, 1X/DAY, IN THE MORNING
  3. HYDROXOCOBALAMIN [Concomitant]
     Active Substance: HYDROXOCOBALAMIN
     Dosage: 1 MG, EVERY 3 MONTHS
  4. MIRTAZAPINE. [Concomitant]
     Active Substance: MIRTAZAPINE
     Dosage: 15 MG, 1X/DAY, AT NIGHT
     Dates: end: 20120219
  5. LANSOPRAZOLE. [Concomitant]
     Active Substance: LANSOPRAZOLE
     Dosage: 15 MG, 1X/DAY, IN THE MORNING
  6. CODEINE [Suspect]
     Active Substance: CODEINE
     Dosage: 30 MG, 4X/DAY
     Route: 048
     Dates: end: 20120219
  7. ZOMORPH [Suspect]
     Active Substance: MORPHINE SULFATE
     Dosage: 90 MG, 2X/DAY
     Route: 048
     Dates: end: 20120219
  8. PREGABALIN. [Suspect]
     Active Substance: PREGABALIN
     Dosage: 25 MG IN THE MORNING AND 50 MG AT NIGHT
     Route: 048
     Dates: end: 20120219
  9. FUROSEMIDE. [Suspect]
     Active Substance: FUROSEMIDE
     Dosage: 40 MG, 1X/DAY, IN THE MORNING
     Route: 048
     Dates: end: 20120219
  10. RAMIPRIL. [Suspect]
     Active Substance: RAMIPRIL
     Dosage: 2.5 MG, 1X/DAY, IN THE MORNING
     Route: 048
     Dates: end: 20120219
  11. ATORVASTATIN [Concomitant]
     Active Substance: ATORVASTATIN
     Dosage: 40 MG, 1X/DAY, AT NIGHT
  12. DIGOXIN. [Concomitant]
     Active Substance: DIGOXIN
     Dosage: 62.5 ?G, 1X/DAY, IN THE MORNING
     Dates: end: 20120219

REACTIONS (3)
  - Toxicity to various agents [Unknown]
  - Acute kidney injury [Unknown]
  - Somnolence [Unknown]

NARRATIVE: CASE EVENT DATE: 20120219
